FAERS Safety Report 10419742 (Version 2)
Quarter: 2014Q4

REPORT INFORMATION
  Report Type: Spontaneous
  Country: AU (occurrence: AU)
  Receive Date: 20140829
  Receipt Date: 20141107
  Transmission Date: 20150528
  Serious: Yes (Hospitalization, Other)
  Sender: FDA-Public Use
  Company Number: AU-BRISTOL-MYERS SQUIBB COMPANY-21328620

PATIENT
  Age: 59 Year
  Sex: Male

DRUGS (5)
  1. DOXEPIN [Concomitant]
     Active Substance: DOXEPIN
  2. YERVOY [Suspect]
     Active Substance: IPILIMUMAB
     Indication: METASTATIC MALIGNANT MELANOMA
     Dosage: 2ND DOSE WITHHELD UNTILL 29AUG14
     Dates: start: 20140731
  3. METHADONE [Concomitant]
     Active Substance: METHADONE HYDROCHLORIDE
  4. LYRICA [Concomitant]
     Active Substance: PREGABALIN
  5. PANADOL [Concomitant]
     Active Substance: ACETAMINOPHEN
     Dosage: OSTEO

REACTIONS (2)
  - Malignant neoplasm progression [Unknown]
  - Pneumonia [Recovered/Resolved]

NARRATIVE: CASE EVENT DATE: 20140817
